FAERS Safety Report 5709959-3 (Version None)
Quarter: 2008Q2

REPORT INFORMATION
  Report Type: 
  Country: None (occurrence: None)
  Receive Date: 20080418
  Receipt Date: 20070808
  Transmission Date: 20081010
  Serious: No
  Sender: FDA-Public Use
  Company Number: US-ASTRAZENECA-2007UW19251

PATIENT
  Age: 66 Year
  Sex: Male
  Weight: 86.2 kg

DRUGS (5)
  1. TOPROL-XL [Suspect]
     Dates: start: 20070801
  2. ANTIDEPRESSANTS [Concomitant]
  3. BPH [Concomitant]
  4. MV [Concomitant]
  5. ASPIRIN [Concomitant]

REACTIONS (2)
  - BLOOD PRESSURE INCREASED [None]
  - MEDICATION RESIDUE [None]
